FAERS Safety Report 17905431 (Version 1)
Quarter: 2020Q2

REPORT INFORMATION
  Report Type: Spontaneous
  Country: US (occurrence: US)
  Receive Date: 20200616
  Receipt Date: 20200616
  Transmission Date: 20200714
  Serious: Yes (Hospitalization)
  Sender: FDA-Public Use
  Company Number: None

PATIENT
  Age: 72 Year
  Sex: Male
  Weight: 173 kg

DRUGS (2)
  1. CLOPIDOGREL (CLOPIDOGREL BISULFATE 75MG TAB) [Suspect]
     Active Substance: CLOPIDOGREL BISULFATE
     Indication: PERIPHERAL VASCULAR DISORDER
     Route: 048
     Dates: start: 20110124, end: 20200612
  2. DICLOFENAC (DICLOFENAC NA 50MG TAB) [Suspect]
     Active Substance: DICLOFENAC SODIUM
     Indication: PAIN
     Route: 048
     Dates: start: 20181204, end: 20200612

REACTIONS (6)
  - Gastric haemorrhage [None]
  - Hypotension [None]
  - Duodenal ulcer [None]
  - Anaemia [None]
  - Syncope [None]
  - Gastric ulcer [None]

NARRATIVE: CASE EVENT DATE: 20200612
